FAERS Safety Report 9234234 (Version 4)
Quarter: 2013Q3

REPORT INFORMATION
  Report Type: Spontaneous
  Country: US (occurrence: US)
  Receive Date: 20130416
  Receipt Date: 20130829
  Transmission Date: 20140515
  Serious: Yes (Other)
  Sender: FDA-Public Use
  Company Number: US-ROCHE-770003

PATIENT
  Age: 22 Year
  Sex: Male
  Weight: 79.4 kg

DRUGS (3)
  1. ACCUTANE [Suspect]
     Indication: ACNE
     Route: 065
     Dates: start: 20020202, end: 200203
  2. ACCUTANE [Suspect]
     Route: 065
     Dates: start: 200208, end: 20020902
  3. RETIN-A [Concomitant]
     Indication: ACNE

REACTIONS (5)
  - Colitis ulcerative [Unknown]
  - Inflammatory bowel disease [Unknown]
  - Pseudomembranous colitis [Unknown]
  - Epistaxis [Unknown]
  - High density lipoprotein increased [Unknown]
